FAERS Safety Report 8797795 (Version 3)
Quarter: 2012Q4

REPORT INFORMATION
  Report Type: 
  Country: US (occurrence: US)
  Receive Date: 20120920
  Receipt Date: 20121008
  Transmission Date: 20130627
  Serious: Yes (Other)
  Sender: FDA-Public Use
  Company Number: US-PFIZER INC-2012231457

PATIENT
  Age: 78 Year
  Sex: Female
  Weight: 64.4 kg

DRUGS (6)
  1. LYRICA [Suspect]
     Indication: NEUROPATHY PERIPHERAL
     Dosage: 75 mg, 2x/day
     Route: 048
     Dates: start: 201209, end: 201209
  2. LYRICA [Suspect]
     Dosage: 50 mg, 1x/day
     Route: 048
     Dates: start: 201209, end: 201209
  3. LYRICA [Suspect]
     Dosage: 75 mg, 2x/day
  4. LYRICA [Suspect]
     Dosage: 50 mg
  5. SYNTHROID [Concomitant]
     Indication: HYPOTHYROIDISM
     Dosage: UNK
  6. ASPIRIN [Concomitant]
     Dosage: UNK

REACTIONS (7)
  - Memory impairment [Recovered/Resolved]
  - Dissociation [Recovered/Resolved]
  - Feeling abnormal [Recovered/Resolved]
  - Hypoaesthesia [Recovered/Resolved]
  - Paraesthesia [Recovered/Resolved]
  - Abnormal behaviour [Recovering/Resolving]
  - Drug ineffective [Unknown]
